FAERS Safety Report 4708487-1 (Version None)
Quarter: 2005Q3

REPORT INFORMATION
  Report Type: 
  Country: None (occurrence: None)
  Receive Date: 20050707
  Receipt Date: 20050705
  Transmission Date: 20060218
  Serious: Yes (Death)
  Sender: FDA-Public Use
  Company Number: JP-SANOFI-SYNTHELABO-F01200501155

PATIENT
  Age: 56 Year
  Sex: Male

DRUGS (3)
  1. OXALIPLATIN [Suspect]
     Indication: RECTAL CANCER
     Route: 042
     Dates: start: 20050621, end: 20050621
  2. FLUOROURACIL [Suspect]
     Dosage: BOLUS INFUSION FOLLOWED BY CONTINUOUS INFUSION ON DAYS 1 AND 2, Q2W
     Route: 042
     Dates: start: 20050621, end: 20050622
  3. CALCIUM LEVOFOLINATE [Suspect]
     Route: 042
     Dates: start: 20050621, end: 20050622

REACTIONS (1)
  - PULMONARY EMBOLISM [None]
